FAERS Safety Report 8168886-5 (Version None)
Quarter: 2012Q1

REPORT INFORMATION
  Report Type: 
  Country: None (occurrence: None)
  Receive Date: 20120227
  Receipt Date: 20120220
  Transmission Date: 20120608
  Serious: Yes (Other)
  Sender: FDA-Public Use
  Company Number: ES-ABBOTT-12P-144-0899168-00

PATIENT
  Sex: Female
  Weight: 62 kg

DRUGS (2)
  1. HUMIRA [Suspect]
     Route: 058
     Dates: start: 20110301, end: 20111001
  2. HUMIRA [Suspect]
     Indication: HIDRADENITIS
     Route: 058
     Dates: end: 20111201

REACTIONS (5)
  - ASTHENIA [None]
  - POLYARTHRITIS [None]
  - MALAISE [None]
  - ERYTHEMA INFECTIOSUM [None]
  - DRUG INEFFECTIVE [None]
